FAERS Safety Report 24334076 (Version 1)
Quarter: 2024Q3

REPORT INFORMATION
  Report Type: Spontaneous
  Country: AU (occurrence: AU)
  Receive Date: 20240918
  Receipt Date: 20240918
  Transmission Date: 20241017
  Serious: Yes (Hospitalization, Other)
  Sender: SANDOZ
  Company Number: AU-MLMSERVICE-20220301-3394667-1

PATIENT
  Age: 43 Year
  Sex: Female

DRUGS (3)
  1. CYCLOSPORINE [Suspect]
     Active Substance: CYCLOSPORINE
     Indication: Immunosuppressant drug therapy
     Route: 065
  2. MYCOPHENOLATE MOFETIL [Suspect]
     Active Substance: MYCOPHENOLATE MOFETIL
     Indication: Immunosuppressant drug therapy
     Route: 065
  3. PREDNISOLONE [Suspect]
     Active Substance: PREDNISOLONE
     Indication: Immunosuppressant drug therapy
     Dosage: UNK
     Route: 065

REACTIONS (8)
  - Epstein-Barr virus infection [Unknown]
  - Bone lesion [Unknown]
  - Smooth muscle cell neoplasm [Unknown]
  - Renal impairment [Unknown]
  - Osteonecrosis [Unknown]
  - Osteoporosis [Unknown]
  - Hypertension [Unknown]
  - Cytomegalovirus colitis [Recovered/Resolved]
